FAERS Safety Report 4615166-8 (Version None)
Quarter: 2005Q1

REPORT INFORMATION
  Report Type: 
  Country: None (occurrence: None)
  Receive Date: 20050322
  Receipt Date: 20050228
  Transmission Date: 20050727
  Serious: Yes (Hospitalization)
  Sender: FDA-Public Use
  Company Number: FR-GLAXOSMITHKLINE-B0373779A

PATIENT

DRUGS (2)
  1. AVANDIA [Suspect]
     Indication: DIABETES MELLITUS NON-INSULIN-DEPENDENT
     Route: 048
  2. LIPANTHYL [Suspect]
     Route: 048

REACTIONS (2)
  - ACUTE CORONARY SYNDROME [None]
  - HIGH DENSITY LIPOPROTEIN DECREASED [None]
